FAERS Safety Report 9047019 (Version 1)
Quarter: 2013Q1

REPORT INFORMATION
  Report Type: Spontaneous
  Country: US (occurrence: None)
  Receive Date: 20130129
  Receipt Date: 20130129
  Transmission Date: 20140127
  Serious: Yes (Other)
  Sender: FDA-Public Use
  Company Number: None

PATIENT
  Age: 73 Year
  Sex: Female

DRUGS (2)
  1. VELCADE 3.5MG/VIAL MILLENIUM PHARMACEUTICALS [Suspect]
     Indication: NEOPLASM MALIGNANT
     Dates: start: 201301
  2. THALOMID 100MG CAPSULES CELGENE [Suspect]
     Route: 048
     Dates: start: 201208

REACTIONS (1)
  - Eye disorder [None]
